FAERS Safety Report 4314364-0 (Version None)
Quarter: 2004Q1

REPORT INFORMATION
  Report Type: 
  Country: None (occurrence: None)
  Receive Date: 20040308
  Receipt Date: 20040225
  Transmission Date: 20041129
  Serious: Yes (Hospitalization)
  Sender: FDA-Public Use
  Company Number: 2004UW00940

PATIENT
  Sex: Male

DRUGS (10)
  1. SEROQUEL [Suspect]
     Indication: SCHIZOAFFECTIVE DISORDER
     Dosage: 30000 MG PO
     Route: 048
     Dates: start: 20040103
  2. LISINOPRIL [Concomitant]
  3. EFFEXOR [Concomitant]
  4. TRAZODONE HCL [Concomitant]
  5. SYNTHROID [Concomitant]
  6. CLARINEX [Concomitant]
  7. DETROL [Concomitant]
  8. KETOROLAC [Concomitant]
  9. NEXIUM [Concomitant]
  10. HYDROCHLOROTHIAZIDE [Concomitant]

REACTIONS (4)
  - BACTERAEMIA [None]
  - OVERDOSE [None]
  - RESPIRATORY FAILURE [None]
  - SUICIDE ATTEMPT [None]
